FAERS Safety Report 7273906-6 (Version None)
Quarter: 2011Q1

REPORT INFORMATION
  Report Type: 
  Country: None (occurrence: None)
  Receive Date: 20110203
  Receipt Date: 20110127
  Transmission Date: 20110831
  Serious: Yes (Hospitalization, Other)
  Sender: FDA-Public Use
  Company Number: IN-ABBOTT-11P-078-0701012-00

PATIENT
  Age: 10 Year
  Sex: Male

DRUGS (4)
  1. VALPROATE SODIUM [Suspect]
     Indication: LENNOX-GASTAUT SYNDROME
     Dosage: 20 MG/KG/DAY
  2. CLOBAZAM [Concomitant]
     Indication: CONVULSION
     Dosage: 0.5 MG/KG/DAY
  3. VALPROATE SODIUM [Suspect]
     Dosage: 60 MG/KG/DAY
  4. VALPROATE SODIUM [Suspect]
     Dosage: TAPERED OFF OVER 4 WEEKS

REACTIONS (2)
  - CEREBELLAR ATROPHY [None]
  - TOXICITY TO VARIOUS AGENTS [None]
